FAERS Safety Report 8046277-5 (Version None)
Quarter: 2012Q1

REPORT INFORMATION
  Report Type: 
  Country: None (occurrence: None)
  Receive Date: 20120113
  Receipt Date: 20120105
  Transmission Date: 20120608
  Serious: Yes (Other)
  Sender: FDA-Public Use
  Company Number: PHHY2012US001023

PATIENT
  Age: 65 Year
  Sex: Female

DRUGS (4)
  1. METRONIDAZOLE [Suspect]
     Indication: TRICHOMONIASIS
     Dosage: 25 MG, UNK
  2. METRONIDAZOLE [Suspect]
     Dosage: 250 MG, Q6H
     Route: 048
  3. METRONIDAZOLE [Suspect]
     Dosage: 250 MG, UNK
  4. METRONIDAZOLE [Suspect]
     Dosage: 100 MG, UNK

REACTIONS (5)
  - NASAL CONGESTION [None]
  - THROAT IRRITATION [None]
  - VOMITING [None]
  - PRURITUS [None]
  - GASTROINTESTINAL TRACT IRRITATION [None]
